FAERS Safety Report 5732483-9 (Version None)
Quarter: 2008Q2

REPORT INFORMATION
  Report Type: 
  Country: None (occurrence: None)
  Receive Date: 20080508
  Receipt Date: 20080424
  Transmission Date: 20081010
  Serious: Yes (Hospitalization)
  Sender: FDA-Public Use
  Company Number: US-ELI_LILLY_AND_COMPANY-US200804006378

PATIENT
  Age: 17 Year
  Sex: Male

DRUGS (2)
  1. STRATTERA [Suspect]
     Dosage: 40 MG, UNK
     Dates: start: 20080403, end: 20080401
  2. STRATTERA [Suspect]
     Dosage: 80 MG, DAILY (1/D)
     Dates: start: 20080401

REACTIONS (1)
  - RHABDOMYOLYSIS [None]
